FAERS Safety Report 6213719-7 (Version None)
Quarter: 2009Q2

REPORT INFORMATION
  Report Type: 
  Country: None (occurrence: None)
  Receive Date: 20090601
  Receipt Date: 20090515
  Transmission Date: 20091009
  Serious: Yes (Other)
  Sender: FDA-Public Use
  Company Number: 279105

PATIENT
  Age: 59 Year
  Sex: Male

DRUGS (6)
  1. EPIRUBICIN [Suspect]
     Indication: GASTRIC CANCER
     Dosage: 100 MG, INTRAVENOUS
     Route: 042
     Dates: start: 20090218
  2. CISPLATIN [Suspect]
     Indication: GASTRIC CANCER
     Dosage: 120 MG, 3, INTRAVENOUS
     Route: 042
     Dates: start: 20090218
  3. CAPECITABINE [Suspect]
     Indication: GASTRIC CANCER
     Dosage: 1300 MG, 2, ORAL
     Route: 048
     Dates: start: 20090218, end: 20090311
  4. CARBAMAZEPINE [Suspect]
     Indication: MENTAL DISORDER
     Dosage: 300 MG, 2, ORAL
     Route: 048
  5. OLANZAPINE [Suspect]
     Indication: MENTAL DISORDER
     Dosage: 10 MG, 1, ORAL
     Route: 048
  6. PERPHENAZINE [Suspect]
     Indication: MENTAL DISORDER
     Dosage: 4 MG, 2, ORAL
     Route: 048

REACTIONS (4)
  - DRUG EFFECT DECREASED [None]
  - DRUG INTERACTION [None]
  - GASTRIC CANCER [None]
  - HALLUCINATION, VISUAL [None]
